FAERS Safety Report 24966922 (Version 1)
Quarter: 2025Q1

REPORT INFORMATION
  Report Type: Report from Study
  Country: US (occurrence: US)
  Receive Date: 20250213
  Receipt Date: 20250213
  Transmission Date: 20250409
  Serious: Yes (Hospitalization)
  Sender: GILEAD
  Company Number: US-GILEAD-2025-0703023

PATIENT
  Sex: Female

DRUGS (1)
  1. AZTREONAM LYSINE [Suspect]
     Active Substance: AZTREONAM LYSINE
     Indication: Cystic fibrosis
     Dosage: 75 MG INHALATION THREE TIMES A DAY CYCLING 28 DAYS ON AND 28 DAYS OFF
     Route: 055
     Dates: start: 202309

REACTIONS (3)
  - Respiratory syncytial virus infection [Unknown]
  - Influenza [Unknown]
  - Product use issue [Unknown]
